FAERS Safety Report 11936363 (Version 5)
Quarter: 2019Q2

REPORT INFORMATION
  Report Type: Spontaneous
  Country: US (occurrence: US)
  Receive Date: 20160121
  Receipt Date: 20190515
  Transmission Date: 20190711
  Serious: No
  Sender: FDA-Public Use
  Company Number: US-PFIZER INC-2016025228

PATIENT
  Sex: Female

DRUGS (12)
  1. CELEBREX [Suspect]
     Active Substance: CELECOXIB
     Dosage: UNK
  2. AMOXICILLIN. [Suspect]
     Active Substance: AMOXICILLIN
     Dosage: UNK
  3. INDERAL LA [Suspect]
     Active Substance: PROPRANOLOL HYDROCHLORIDE
     Dosage: UNK
  4. MOTRIN [Suspect]
     Active Substance: IBUPROFEN
     Dosage: UNK
  5. POTASSIUM PERCHLORATE [Suspect]
     Active Substance: POTASSIUM PERCHLORATE
     Dosage: UNK
  6. BUDESONIDE. [Suspect]
     Active Substance: BUDESONIDE
     Dosage: UNK
  7. VESICARE [Suspect]
     Active Substance: SOLIFENACIN SUCCINATE
     Dosage: UNK
  8. IBUPROFEN. [Suspect]
     Active Substance: IBUPROFEN
     Dosage: UNK
  9. CLARITHROMYCIN. [Suspect]
     Active Substance: CLARITHROMYCIN
     Dosage: UNK
  10. AUGMENTIN [Suspect]
     Active Substance: AMOXICILLIN\CLAVULANATE POTASSIUM
     Dosage: UNK
  11. CILOSTAZOL. [Suspect]
     Active Substance: CILOSTAZOL
     Dosage: UNK
  12. FORMOTEROL [Suspect]
     Active Substance: FORMOTEROL
     Dosage: UNK

REACTIONS (1)
  - Drug hypersensitivity [Unknown]
